FAERS Safety Report 6725289-5 (Version None)
Quarter: 2010Q2

REPORT INFORMATION
  Report Type: 
  Country: None (occurrence: None)
  Receive Date: 20100514
  Receipt Date: 20100504
  Transmission Date: 20101027
  Serious: Yes (Other)
  Sender: FDA-Public Use
  Company Number: US-SANOFI-AVENTIS-2010SA026064

PATIENT
  Sex: Male

DRUGS (1)
  1. AMBIEN [Suspect]
     Route: 048

REACTIONS (4)
  - AGGRESSION [None]
  - AMNESIA [None]
  - PHYSICAL ASSAULT [None]
  - SEXUAL ABUSE [None]
